FAERS Safety Report 24289591 (Version 1)
Quarter: 2024Q3

REPORT INFORMATION
  Report Type: Spontaneous
  Country: JP (occurrence: JP)
  Receive Date: 20240906
  Receipt Date: 20240906
  Transmission Date: 20241017
  Serious: Yes (Hospitalization, Other)
  Sender: NOVITIUM PHARMA
  Company Number: JP-NOVITIUMPHARMA-2024JPNVP01776

PATIENT
  Age: 23 Year
  Sex: Female

DRUGS (1)
  1. VALSARTAN [Suspect]
     Active Substance: VALSARTAN
     Indication: Product used for unknown indication
     Dosage: 22 TABLETS (880MG IN TOTAL)

REACTIONS (5)
  - Agitation [Unknown]
  - Sedation [Unknown]
  - Intentional overdose [Unknown]
  - Oligohydramnios [Unknown]
  - Exposure during pregnancy [Unknown]
